FAERS Safety Report 19258518 (Version 2)
Quarter: 2021Q2

REPORT INFORMATION
  Report Type: Spontaneous
  Country: US (occurrence: US)
  Receive Date: 20210514
  Receipt Date: 20210611
  Transmission Date: 20210717
  Serious: No
  Sender: FDA-Public Use
  Company Number: US-ASTRAZENECA-2021A353998

PATIENT
  Sex: Female
  Weight: 68 kg

DRUGS (8)
  1. SYMBICORT [Suspect]
     Active Substance: BUDESONIDE\FORMOTEROL FUMARATE DIHYDRATE
     Indication: CHRONIC OBSTRUCTIVE PULMONARY DISEASE
     Dosage: 160/4.5 MCG 2 PUFFS TWICE DAILY
     Route: 055
  2. TORSEMIDE. [Concomitant]
     Active Substance: TORSEMIDE
     Indication: FLUID IMBALANCE
     Route: 048
  3. CALCIUM [Concomitant]
     Active Substance: CALCIUM
     Indication: MINERAL SUPPLEMENTATION
     Route: 048
  4. FISH OIL [Concomitant]
     Active Substance: FISH OIL
     Indication: NUTRITIONAL SUPPLEMENTATION
     Route: 048
  5. BREZTRI AEROSPHERE [Suspect]
     Active Substance: BUDESONIDE\FORMOTEROL\GLYCOPYRRONIUM
     Indication: CHRONIC OBSTRUCTIVE PULMONARY DISEASE
     Dosage: 160/9/4.8 MCG 2 PUFFS
     Route: 055
     Dates: start: 202010
  6. LOSARTAN. [Concomitant]
     Active Substance: LOSARTAN
     Indication: BLOOD PRESSURE ABNORMAL
     Route: 048
  7. ATORVASTATIN [Concomitant]
     Active Substance: ATORVASTATIN
     Indication: BLOOD CHOLESTEROL ABNORMAL
     Route: 048
  8. ACELASTINE/FLUTIC [Concomitant]
     Indication: NASAL DISCOMFORT
     Dosage: WALGREENS BRAND LUBRICANT DROPS
     Route: 045

REACTIONS (6)
  - Drug delivery system issue [Unknown]
  - Weight fluctuation [Not Recovered/Not Resolved]
  - Dizziness [Unknown]
  - Device leakage [Unknown]
  - Intentional device misuse [Unknown]
  - Wrong technique in device usage process [Unknown]
